FAERS Safety Report 5675443-9 (Version None)
Quarter: 2008Q2

REPORT INFORMATION
  Report Type: 
  Country: None (occurrence: None)
  Receive Date: 20080311
  Receipt Date: 20070220
  Transmission Date: 20081010
  Serious: Yes (Hospitalization, Disabling)
  Sender: FDA-Public Use
  Company Number: PHEH2007US02228

PATIENT
  Age: 12 Year
  Sex: Male

DRUGS (1)
  1. TRILEPTAL [Suspect]
     Indication: AFFECTIVE DISORDER
     Dates: start: 20050131, end: 20050215

REACTIONS (13)
  - ANXIETY [None]
  - BLISTER [None]
  - DECREASED INTEREST [None]
  - EMOTIONAL DISTRESS [None]
  - INTERNAL INJURY [None]
  - PAIN [None]
  - PRURITUS [None]
  - RASH [None]
  - SCAR [None]
  - SELF-INJURIOUS IDEATION [None]
  - SKIN EXFOLIATION [None]
  - STEVENS-JOHNSON SYNDROME [None]
  - VISUAL DISTURBANCE [None]
